FAERS Safety Report 14022152 (Version 1)
Quarter: 2017Q3

REPORT INFORMATION
  Report Type: Spontaneous
  Country: US (occurrence: US)
  Receive Date: 20170928
  Receipt Date: 20170928
  Transmission Date: 20171128
  Serious: Yes (Hospitalization)
  Sender: FDA-Public Use
  Company Number: US-PRESTIGE BRANDS -2028102

PATIENT
  Sex: Male

DRUGS (1)
  1. DRAMAMINE ORIGINAL FORMULA [Suspect]
     Active Substance: DIMENHYDRINATE
     Indication: MOTION SICKNESS
     Route: 048
     Dates: start: 20170830, end: 20170830

REACTIONS (4)
  - Dizziness [Unknown]
  - Vomiting [Recovered/Resolved]
  - Hospitalisation [Recovered/Resolved]
  - Nausea [Unknown]

NARRATIVE: CASE EVENT DATE: 20170831
